FAERS Safety Report 4913120-X (Version None)
Quarter: 2006Q1

REPORT INFORMATION
  Report Type: 
  Country: None (occurrence: None)
  Receive Date: 20060210
  Receipt Date: 20060118
  Transmission Date: 20060701
  Serious: Yes (Death, Congenital Anomaly)
  Sender: FDA-Public Use
  Company Number: GXKR2006JP00829

PATIENT
  Sex: Female
  Weight: 208 kg

DRUGS (1)
  1. THIAMAZOLE (NGX)(THIAMAZOLE) [Suspect]
     Dosage: TRANSPLACENTAL
     Route: 064

REACTIONS (16)
  - APLASIA [None]
  - BIOPSY CORNEA ABNORMAL [None]
  - CAESAREAN SECTION [None]
  - COLONIC OBSTRUCTION [None]
  - DRUG EXPOSURE DURING PREGNANCY [None]
  - FOETAL GROWTH RETARDATION [None]
  - GALLBLADDER ANOMALY CONGENITAL [None]
  - GASTROINTESTINAL MALFORMATION [None]
  - IRIS COLOBOMA [None]
  - MICROCORNEA [None]
  - MULTIPLE CONGENITAL ABNORMALITIES [None]
  - NIPPLE DISORDER [None]
  - PLACENTA PRAEVIA [None]
  - RETINAL COLOBOMA [None]
  - SHOCK HAEMORRHAGIC [None]
  - UMBILICAL HAEMORRHAGE [None]
